FAERS Safety Report 6480148-0 (Version None)
Quarter: 2009Q4

REPORT INFORMATION
  Report Type: 
  Country: None (occurrence: None)
  Receive Date: 20091208
  Receipt Date: 20091126
  Transmission Date: 20100525
  Serious: Yes (Disabling)
  Sender: FDA-Public Use
  Company Number: PHHY2009FI52183

PATIENT
  Sex: Female

DRUGS (10)
  1. EXELON [Suspect]
     Indication: DEMENTIA ALZHEIMER'S TYPE
     Dosage: 4.6 MG PATCH PER DAY
     Route: 062
     Dates: start: 20090601, end: 20091101
  2. EXELON [Suspect]
     Dosage: 9.5 MG PATCH PER DAY
     Route: 062
     Dates: end: 20091101
  3. CIPRALEX [Concomitant]
  4. ISANGINA [Concomitant]
  5. EMCONCOR [Concomitant]
  6. CARDACE [Concomitant]
  7. MAREVAN [Concomitant]
  8. XALATAN [Concomitant]
  9. XALCOM [Concomitant]
  10. NITROGLYCERIN [Concomitant]

REACTIONS (5)
  - ACTIVITIES OF DAILY LIVING IMPAIRED [None]
  - DECREASED APPETITE [None]
  - EATING DISORDER [None]
  - NAUSEA [None]
  - TREMOR [None]
